FAERS Safety Report 6609022-3 (Version None)
Quarter: 2010Q1

REPORT INFORMATION
  Report Type: 
  Country: None (occurrence: None)
  Receive Date: 20100301
  Receipt Date: 20100219
  Transmission Date: 20100710
  Serious: Yes (Hospitalization)
  Sender: FDA-Public Use
  Company Number: FR-AMGEN-QUU393777

PATIENT
  Sex: Male

DRUGS (17)
  1. NEUPOGEN [Suspect]
     Indication: NEUTROPENIA
     Route: 042
     Dates: start: 20091224, end: 20100104
  2. RIFADIN [Concomitant]
     Route: 048
     Dates: start: 20100111, end: 20100116
  3. FORTUM [Concomitant]
     Route: 042
     Dates: start: 20091226, end: 20100107
  4. BACTRIM [Concomitant]
     Route: 048
     Dates: start: 20091215, end: 20100119
  5. VANCOMYCIN [Concomitant]
     Route: 042
     Dates: start: 20091231, end: 20100115
  6. NEXIUM [Concomitant]
     Route: 048
  7. PERFALGAN [Concomitant]
     Route: 042
     Dates: start: 20091227, end: 20100104
  8. PLITICAN [Concomitant]
     Route: 042
     Dates: start: 20091226, end: 20100106
  9. GENTAMYCIN SULFATE [Concomitant]
     Route: 042
     Dates: start: 20091231, end: 20100107
  10. COLIMYCINE [Concomitant]
     Route: 048
     Dates: start: 20091228, end: 20100106
  11. ALBUMIN (HUMAN) [Concomitant]
     Route: 042
     Dates: start: 20100103, end: 20100104
  12. UNSPECIFIED ANTINEOPLASTIC AGENT [Concomitant]
     Route: 037
     Dates: start: 20091218
  13. ZOPHREN [Concomitant]
     Route: 042
     Dates: start: 20091230, end: 20100106
  14. DUPHALAC [Concomitant]
     Route: 048
     Dates: start: 20091222, end: 20100115
  15. NUBAIN [Concomitant]
     Route: 042
     Dates: start: 20091231, end: 20091231
  16. FUNGIZONE [Concomitant]
     Route: 048
     Dates: start: 20091218, end: 20100121
  17. MORPHINE [Concomitant]
     Route: 042
     Dates: start: 20100101, end: 20100104

REACTIONS (1)
  - STEVENS-JOHNSON SYNDROME [None]
